FAERS Safety Report 23428575 (Version 1)
Quarter: 2024Q1

REPORT INFORMATION
  Report Type: Spontaneous
  Country: US (occurrence: US)
  Receive Date: 20240122
  Receipt Date: 20240122
  Transmission Date: 20240409
  Serious: No
  Sender: FDA-Public Use
  Company Number: US-GILEAD-2024-0659276

PATIENT
  Sex: Male

DRUGS (3)
  1. LENACAPAVIR [Suspect]
     Active Substance: LENACAPAVIR
     Indication: HIV infection
     Dosage: 2 DOSAGE FORM
     Route: 048
     Dates: start: 20240109
  2. LENACAPAVIR [Suspect]
     Active Substance: LENACAPAVIR
     Dosage: UNK, DAY 2
     Route: 048
     Dates: start: 20240110
  3. LENACAPAVIR [Suspect]
     Active Substance: LENACAPAVIR
     Dosage: UNK, 3 THIRD DOSE DAY 10 NOT DAY 8
     Route: 048
     Dates: start: 202401

REACTIONS (1)
  - Inappropriate schedule of product administration [Recovered/Resolved]
